FAERS Safety Report 25562413 (Version 2)
Quarter: 2025Q3

REPORT INFORMATION
  Report Type: Spontaneous
  Country: EU (occurrence: EU)
  Receive Date: 20250716
  Receipt Date: 20250822
  Transmission Date: 20251021
  Serious: Yes (Other)
  Sender: JOHNSON AND JOHNSON
  Company Number: EU-JNJFOC-20250714755

PATIENT
  Age: 24 Year
  Sex: Female

DRUGS (4)
  1. METHYLPHENIDATE [Suspect]
     Active Substance: METHYLPHENIDATE
     Indication: Attention deficit hyperactivity disorder
  2. VENLAFAXINE [Concomitant]
     Active Substance: VENLAFAXINE HYDROCHLORIDE
     Indication: Major depression
  3. METOPROLOL [Concomitant]
     Active Substance: METOPROLOL
     Indication: Tachycardia
  4. QUETIAPINE [Concomitant]
     Active Substance: QUETIAPINE
     Indication: Initial insomnia

REACTIONS (4)
  - Visual snow syndrome [Not Recovered/Not Resolved]
  - Condition aggravated [Unknown]
  - Contraindicated product administered [Unknown]
  - Off label use [Unknown]
